FAERS Safety Report 5559755-5 (Version None)
Quarter: 2007Q4

REPORT INFORMATION
  Report Type: 
  Country: None (occurrence: None)
  Receive Date: 20071130
  Receipt Date: 20070829
  Transmission Date: 20080405
  Serious: No
  Sender: FDA-Public Use
  Company Number: 2005PV002670

PATIENT
  Age: 72 Year
  Sex: Male
  Weight: 82.6 kg

DRUGS (30)
  1. EXENATIDE(EXENATIDE) PEN,DISPOSABLE [Suspect]
     Indication: TYPE 2 DIABETES MELLITUS
     Dosage: SEE IMAGE
     Route: 058
     Dates: start: 20050926, end: 20050926
  2. EXENATIDE(EXENATIDE) PEN,DISPOSABLE [Suspect]
     Indication: TYPE 2 DIABETES MELLITUS
     Dosage: SEE IMAGE
     Route: 058
     Dates: start: 20050926, end: 20050926
  3. EXENATIDE(EXENATIDE) PEN,DISPOSABLE [Suspect]
     Indication: TYPE 2 DIABETES MELLITUS
     Dosage: SEE IMAGE
     Route: 058
     Dates: start: 20050927, end: 20060101
  4. EXENATIDE(EXENATIDE) PEN,DISPOSABLE [Suspect]
     Indication: TYPE 2 DIABETES MELLITUS
     Dosage: SEE IMAGE
     Route: 058
     Dates: start: 20050927, end: 20060101
  5. EXENATIDE(EXENATIDE) PEN,DISPOSABLE [Suspect]
     Indication: TYPE 2 DIABETES MELLITUS
     Dosage: SEE IMAGE
     Route: 058
     Dates: start: 20060521, end: 20060101
  6. EXENATIDE(EXENATIDE) PEN,DISPOSABLE [Suspect]
     Indication: TYPE 2 DIABETES MELLITUS
     Dosage: SEE IMAGE
     Route: 058
     Dates: end: 20060101
  7. EXENATIDE(EXENATIDE) PEN,DISPOSABLE [Suspect]
     Indication: TYPE 2 DIABETES MELLITUS
     Dosage: SEE IMAGE
     Route: 058
     Dates: start: 20050101
  8. EXENATIDE(EXENATIDE) PEN,DISPOSABLE [Suspect]
     Indication: TYPE 2 DIABETES MELLITUS
     Dosage: SEE IMAGE
     Route: 058
     Dates: start: 20050101
  9. EXENATIDE(EXENATIDE) PEN,DISPOSABLE [Suspect]
     Indication: TYPE 2 DIABETES MELLITUS
     Dosage: SEE IMAGE
     Route: 058
     Dates: start: 20050926
  10. EXENATIDE(EXENATIDE) PEN,DISPOSABLE [Suspect]
     Indication: TYPE 2 DIABETES MELLITUS
     Dosage: SEE IMAGE
     Route: 058
     Dates: start: 20060101
  11. EXENATIDE(EXENATIDE) PEN,DISPOSABLE [Suspect]
  12. EXENATIDE(EXENATIDE) PEN,DISPOSABLE [Suspect]
  13. EXENATIDE(EXENATIDE) PEN,DISPOSABLE [Suspect]
  14. AVANDIA [Concomitant]
  15. GLYBURIDE [Concomitant]
  16. MONOPRIL [Concomitant]
  17. AVAPRO [Concomitant]
  18. LIPITOR [Concomitant]
  19. VYTORIN [Concomitant]
  20. ASPIRIN [Concomitant]
  21. ANGIOTENSIN RECEPTOR BLOCKER [Concomitant]
  22. HYDROCHLOROTHIAZIDE [Concomitant]
  23. AVAPRO [Concomitant]
  24. VITAMIN B1 [Concomitant]
  25. ALLOPURINOL [Concomitant]
  26. FOLIC ACID [Concomitant]
  27. APRO [Concomitant]
  28. EZETIMIBE [Concomitant]
  29. SIMVASTATIN [Concomitant]
  30. VYTORIN [Concomitant]

REACTIONS (17)
  - ANOREXIA [None]
  - BLOOD CHOLESTEROL DECREASED [None]
  - BLOOD GLUCOSE DECREASED [None]
  - BLOOD GLUCOSE INCREASED [None]
  - CONFUSIONAL STATE [None]
  - DIZZINESS [None]
  - DRUG INEFFECTIVE [None]
  - ERUCTATION [None]
  - FEELING ABNORMAL [None]
  - GASTROOESOPHAGEAL REFLUX DISEASE [None]
  - HYPOGLYCAEMIA [None]
  - INJECTION SITE PAIN [None]
  - NAUSEA [None]
  - THERAPEUTIC RESPONSE UNEXPECTED [None]
  - THROAT IRRITATION [None]
  - VISION BLURRED [None]
  - WEIGHT DECREASED [None]
